FAERS Safety Report 5781722-7 (Version None)
Quarter: 2008Q2

REPORT INFORMATION
  Report Type: 
  Country: None (occurrence: None)
  Receive Date: 20080623
  Receipt Date: 20070420
  Transmission Date: 20081010
  Serious: No
  Sender: FDA-Public Use
  Company Number: US-ASTRAZENECA-2007UW07896

PATIENT
  Age: 56 Year
  Sex: Male
  Weight: 65.8 kg

DRUGS (6)
  1. RHINOCORT [Suspect]
     Indication: NASAL CONGESTION
     Dosage: 2 SPRAYS PER NOSTRIL EVERY DAY IN THE MORNING.
     Route: 045
     Dates: start: 20020101
  2. RHINOCORT [Suspect]
     Indication: SEASONAL ALLERGY
     Dosage: 2 SPRAYS PER NOSTRIL EVERY DAY IN THE MORNING.
     Route: 045
     Dates: start: 20020101
  3. RHINOCORT [Suspect]
     Indication: RHINITIS ALLERGIC
     Dosage: 2 SPRAYS PER NOSTRIL EVERY DAY IN THE MORNING.
     Route: 045
     Dates: start: 20020101
  4. ALLEGRA [Concomitant]
  5. RANITIDINE HCL [Concomitant]
  6. LIPITOR [Concomitant]

REACTIONS (4)
  - DRUG INEFFECTIVE [None]
  - HYPOAESTHESIA [None]
  - PARAESTHESIA [None]
  - SKIN REACTION [None]
